FAERS Safety Report 11241259 (Version 1)
Quarter: 2015Q3

REPORT INFORMATION
  Report Type: Spontaneous
  Country: CH (occurrence: CH)
  Receive Date: 20150706
  Receipt Date: 20150706
  Transmission Date: 20151125
  Serious: Yes (Hospitalization)
  Sender: FDA-Public Use
  Company Number: CH-BAYER-2015-369204

PATIENT
  Age: 81 Year
  Sex: Male
  Weight: 84 kg

DRUGS (5)
  1. ASPIRIN CARDIO [Suspect]
     Active Substance: ASPIRIN
     Dosage: 100 MG, QD
     Route: 048
     Dates: end: 201504
  2. PRAVASTATIN [Concomitant]
     Active Substance: PRAVASTATIN\PRAVASTATIN SODIUM
     Dosage: 40 MG, QD
     Route: 048
  3. SINTROM [Suspect]
     Active Substance: ACENOCOUMAROL
     Indication: ANTICOAGULANT THERAPY
     Dosage: 1 MG, UNK
     Route: 048
     Dates: start: 201412, end: 201504
  4. ZANIDIP [Concomitant]
     Active Substance: LERCANIDIPINE HYDROCHLORIDE
     Dosage: 20 MG, QD
     Route: 048
  5. DAFALGAN [Concomitant]
     Active Substance: ACETAMINOPHEN
     Dosage: 1 G, QID
     Route: 048

REACTIONS (4)
  - Haematemesis [Recovered/Resolved]
  - Melaena [Recovered/Resolved]
  - Gastrointestinal haemorrhage [Recovering/Resolving]
  - Gastroduodenal ulcer [Recovering/Resolving]

NARRATIVE: CASE EVENT DATE: 201504
